FAERS Safety Report 8954693 (Version 3)
Quarter: 2013Q4

REPORT INFORMATION
  Report Type: Report from Study
  Country: ES (occurrence: ES)
  Receive Date: 20121210
  Receipt Date: 20131121
  Transmission Date: 20140711
  Serious: Yes (Disabling)
  Sender: FDA-Public Use
  Company Number: PHHO2012ES017321

PATIENT
  Sex: 0

DRUGS (1)
  1. ZOLEDRONATE [Suspect]
     Indication: PLASMA CELL MYELOMA
     Dosage: 4 MG, UNK
     Dates: start: 20120217, end: 20121026

REACTIONS (1)
  - Osteonecrosis of jaw [Not Recovered/Not Resolved]
